FAERS Safety Report 8361910-6 (Version None)
Quarter: 2012Q2

REPORT INFORMATION
  Report Type: 
  Country: None (occurrence: None)
  Receive Date: 20120515
  Receipt Date: 20120507
  Transmission Date: 20120825
  Serious: Yes (Hospitalization, Other)
  Sender: FDA-Public Use
  Company Number: US-JNJFOC-20100307130

PATIENT
  Age: 80 Year
  Sex: Male
  Weight: 95.26 kg

DRUGS (5)
  1. TYLENOL-500 [Concomitant]
     Indication: PAIN
  2. MOTRIN IB [Suspect]
     Indication: PAIN
     Route: 048
     Dates: end: 20091101
  3. MOTRIN IB [Suspect]
     Indication: ARTHRITIS
     Route: 048
     Dates: end: 20091101
  4. FLOMAX [Concomitant]
     Indication: BLADDER DISORDER
     Dates: start: 20040101
  5. SIMVASTATIN [Concomitant]
     Indication: BLOOD CHOLESTEROL INCREASED
     Dates: start: 19950101

REACTIONS (3)
  - ULCER [None]
  - HAEMATOCHEZIA [None]
  - BLOOD COUNT ABNORMAL [None]
